FAERS Safety Report 24705635 (Version 1)
Quarter: 2024Q4

REPORT INFORMATION
  Report Type: Spontaneous
  Country: US (occurrence: None)
  Receive Date: 20241205
  Receipt Date: 20241205
  Transmission Date: 20250115
  Serious: Yes (Hospitalization)
  Sender: Public
  Company Number: None

PATIENT
  Age: 80 Year
  Sex: Female
  Weight: 121 kg

DRUGS (1)
  1. GAMMAGARD [Suspect]
     Active Substance: HUMAN IMMUNOGLOBULIN G
     Indication: Myasthenia gravis
     Dosage: ?48 G GRAM(S) EVERY 4 WEEKS INTRAVENOUS
     Route: 042

REACTIONS (4)
  - Chest pain [None]
  - Paraesthesia [None]
  - Flushing [None]
  - Hypertension [None]

NARRATIVE: CASE EVENT DATE: 20241205
